FAERS Safety Report 6610919-9 (Version None)
Quarter: 2010Q1

REPORT INFORMATION
  Report Type: 
  Country: None (occurrence: None)
  Receive Date: 20100222
  Receipt Date: 20100217
  Transmission Date: 20100710
  Serious: No
  Sender: FDA-Public Use
  Company Number: 2010000891

PATIENT
  Sex: Female

DRUGS (2)
  1. FENTORA [Suspect]
     Indication: TEMPOROMANDIBULAR JOINT SYNDROME
     Dosage: (400 MCG), BU
     Route: 002
  2. METHADONE HCL [Concomitant]

REACTIONS (2)
  - DRUG PRESCRIBING ERROR [None]
  - INTERCEPTED MEDICATION ERROR [None]
